FAERS Safety Report 7331835-3 (Version None)
Quarter: 2011Q1

REPORT INFORMATION
  Report Type: 
  Country: None (occurrence: None)
  Receive Date: 20110228
  Receipt Date: 20110228
  Transmission Date: 20110831
  Serious: Yes (Other)
  Sender: FDA-Public Use
  Company Number: None

PATIENT
  Sex: Female

DRUGS (1)
  1. TAXOTERE [Suspect]
     Indication: BREAST CANCER
     Dosage: VARIES EVERY 3 WEEKS IV INFUSION NUMEROUS
     Route: 042

REACTIONS (4)
  - SCRATCH [None]
  - THERMAL BURN [None]
  - BLISTER [None]
  - PRURITUS [None]
